FAERS Safety Report 7380639-4 (Version None)
Quarter: 2011Q1

REPORT INFORMATION
  Report Type: 
  Country: None (occurrence: None)
  Receive Date: 20110329
  Receipt Date: 20110317
  Transmission Date: 20110831
  Serious: Yes (Hospitalization)
  Sender: FDA-Public Use
  Company Number: JP-SANOFI-AVENTIS-2010SA059032

PATIENT
  Age: 65 Year
  Sex: Male

DRUGS (13)
  1. OXALIPLATIN [Suspect]
     Indication: LARGE INTESTINE CARCINOMA
     Route: 041
     Dates: start: 20091203, end: 20091203
  2. MAGNESIUM OXIDE [Concomitant]
     Dates: start: 20091203
  3. XELODA [Suspect]
     Route: 048
     Dates: end: 20100826
  4. AVASTIN [Suspect]
     Route: 041
     Dates: start: 20100826, end: 20100826
  5. URSO 250 [Concomitant]
     Dates: start: 20051201
  6. ALESION [Concomitant]
     Dates: start: 20051107
  7. MS CONTIN [Concomitant]
     Dates: start: 20091203
  8. OXALIPLATIN [Suspect]
     Route: 041
     Dates: start: 20100826, end: 20100826
  9. XELODA [Suspect]
     Indication: LARGE INTESTINE CARCINOMA
     Route: 048
     Dates: start: 20090910
  10. BACILLUS SUBTILIS/STREPTOCOCCUS FAECALIS [Concomitant]
     Dates: start: 20091112
  11. PYDOXAL [Concomitant]
     Dates: start: 20080724
  12. TAGAMET [Concomitant]
     Dates: start: 20051020
  13. AVASTIN [Suspect]
     Indication: LARGE INTESTINE CARCINOMA
     Route: 041
     Dates: start: 20100204, end: 20100204

REACTIONS (5)
  - PAIN [None]
  - PROTEIN URINE PRESENT [None]
  - BACK PAIN [None]
  - DISSEMINATED INTRAVASCULAR COAGULATION [None]
  - CONSTIPATION [None]
